FAERS Safety Report 16490035 (Version 1)
Quarter: 2019Q2

REPORT INFORMATION
  Report Type: Spontaneous
  Country: DE (occurrence: DE)
  Receive Date: 20190628
  Receipt Date: 20190628
  Transmission Date: 20190711
  Serious: Yes (Hospitalization, Congenital Anomaly)
  Sender: FDA-Public Use
  Company Number: DE-ASTRAZENECA-2019SE91248

PATIENT
  Age: 0 Day
  Sex: Female
  Weight: 1.6 kg

DRUGS (13)
  1. RISPERDAL CONSTA [Suspect]
     Active Substance: RISPERIDONE
     Indication: PSYCHOTIC DISORDER
     Dosage: 25 [MG/2WEEKS (AB 4.4 3WEEKS)]/ TILL WK 5 EVERY 2 WKS
     Route: 064
     Dates: start: 201104, end: 2011
  2. ACETYLSALICYLIC ACID [Concomitant]
     Active Substance: ASPIRIN
     Indication: PRE-ECLAMPSIA
     Dosage: DAILY DOSE: 100 MG
     Route: 064
     Dates: start: 2011, end: 20111120
  3. TOLPERISONE [Concomitant]
     Active Substance: TOLPERISONE
     Route: 064
     Dates: start: 201104, end: 20110516
  4. SEROQUEL [Suspect]
     Active Substance: QUETIAPINE FUMARATE
     Indication: PSYCHOTIC DISORDER
     Dosage: DAILY DOSE: 400 MG
     Route: 064
     Dates: start: 201104, end: 201105
  5. IBUPROFEN. [Concomitant]
     Active Substance: IBUPROFEN
     Indication: TRIGEMINAL NEURALGIA
     Dosage: UNK UNK, AS NEEDED (PRN)
     Route: 064
     Dates: start: 20110927, end: 20111124
  6. BETAMETHASONE. [Concomitant]
     Active Substance: BETAMETHASONE
     Indication: MATERNAL THERAPY TO ENHANCE FOETAL LUNG MATURITY
     Dosage: DAILY DOSE: 12 MG
     Route: 064
     Dates: start: 20111120, end: 20111121
  7. MELPERONE [Concomitant]
     Active Substance: MELPERONE
     Indication: PSYCHOTIC DISORDER
     Route: 064
     Dates: start: 201104, end: 20110516
  8. PROMETHAZINE [Suspect]
     Active Substance: PROMETHAZINE\PROMETHAZINE HYDROCHLORIDE
     Indication: RESTLESSNESS
     Dosage: 10 MG, 3X/DAY (TID)
     Route: 064
     Dates: start: 20110527, end: 2011
  9. CARBAMAZEPIN [Concomitant]
     Active Substance: CARBAMAZEPINE
     Indication: TRIGEMINAL NEURALGIA
     Dosage: 100 MG, 3X/DAY (TID)
     Route: 064
     Dates: start: 20110927, end: 20111124
  10. SEROQUEL [Suspect]
     Active Substance: QUETIAPINE FUMARATE
     Indication: PSYCHOTIC DISORDER
     Dosage: DAILY DOSE: 200 MG
     Route: 064
     Dates: start: 201105, end: 20111124
  11. PROMETHAZINE [Suspect]
     Active Substance: PROMETHAZINE\PROMETHAZINE HYDROCHLORIDE
     Indication: RESTLESSNESS
     Dosage: 50 MG, 4X/DAY (QID)
     Route: 064
     Dates: start: 2011, end: 20111124
  12. RISPERDAL CONSTA [Suspect]
     Active Substance: RISPERIDONE
     Indication: PSYCHOTIC DISORDER
     Dosage: 25 MG EVERY 3 WEEKS
     Route: 064
     Dates: start: 2011, end: 20111124
  13. INSULIN [Concomitant]
     Active Substance: INSULIN NOS
     Indication: GESTATIONAL DIABETES
     Dosage: FROM GESTATIONAL WEEK 27
     Route: 064
     Dates: start: 2011

REACTIONS (5)
  - Premature baby [Unknown]
  - Tracheo-oesophageal fistula [Recovered/Resolved with Sequelae]
  - Maternal exposure during pregnancy [Recovered/Resolved]
  - Oesophageal atresia [Recovered/Resolved with Sequelae]
  - Haemangioma congenital [Unknown]

NARRATIVE: CASE EVENT DATE: 20110527
